FAERS Safety Report 8074419-4 (Version None)
Quarter: 2012Q1

REPORT INFORMATION
  Report Type: 
  Country: None (occurrence: None)
  Receive Date: 20120126
  Receipt Date: 20120110
  Transmission Date: 20120608
  Serious: Yes (Other)
  Sender: FDA-Public Use
  Company Number: AU-GLAXOSMITHKLINE-B0775596A

PATIENT
  Sex: Female
  Weight: 57 kg

DRUGS (1)
  1. ZOVIRAX [Suspect]
     Indication: HERPES OPHTHALMIC
     Dosage: 1CM FIVE TIMES PER DAY
     Route: 047
     Dates: start: 20111229

REACTIONS (2)
  - PRODUCT QUALITY ISSUE [None]
  - EYE DISCHARGE [None]
